FAERS Safety Report 4653545-3 (Version None)
Quarter: 2005Q2

REPORT INFORMATION
  Report Type: 
  Country: None (occurrence: None)
  Receive Date: 20050503
  Receipt Date: 20050407
  Transmission Date: 20051028
  Serious: No
  Sender: FDA-Public Use
  Company Number: 805#1#2005-00017

PATIENT

DRUGS (1)
  1. ALPROSTADIL [Suspect]
     Indication: HEART DISEASE CONGENITAL

REACTIONS (3)
  - FEVER NEONATAL [None]
  - NEONATAL APNOEIC ATTACK [None]
  - NEONATAL HYPONATRAEMIA [None]
